FAERS Safety Report 13913087 (Version 1)
Quarter: 2017Q3

REPORT INFORMATION
  Report Type: Spontaneous
  Country: US (occurrence: US)
  Receive Date: 20170828
  Receipt Date: 20170828
  Transmission Date: 20171127
  Serious: No
  Sender: FDA-Public Use
  Company Number: US-ROCHE-1123948

PATIENT
  Age: 5 Year
  Sex: Male

DRUGS (7)
  1. SYNTHROID [Concomitant]
     Active Substance: LEVOTHYROXINE SODIUM
     Route: 065
  2. SYNTHROID [Concomitant]
     Active Substance: LEVOTHYROXINE SODIUM
     Route: 065
  3. CORTEF [Concomitant]
     Active Substance: HYDROCORTISONE
     Dosage: IN THE MORNING
     Route: 065
  4. CORTEF [Concomitant]
     Active Substance: HYDROCORTISONE
     Dosage: IN THE EVENING
     Route: 065
  5. TESTOSTERONE ENANTATE [Concomitant]
     Active Substance: TESTOSTERONE
     Route: 030
  6. NUTROPIN AQ [Suspect]
     Active Substance: SOMATROPIN
     Indication: HYPOPITUITARISM
     Route: 058
  7. NUTROPIN AQ [Suspect]
     Active Substance: SOMATROPIN
     Route: 058

REACTIONS (7)
  - Glycosylated haemoglobin decreased [Unknown]
  - Tri-iodothyronine uptake decreased [Recovered/Resolved]
  - Thyroxine free decreased [Recovered/Resolved]
  - Thirst [Unknown]
  - Weight increased [Unknown]
  - Insulin-like growth factor decreased [Unknown]
  - Blood thyroid stimulating hormone decreased [Unknown]

NARRATIVE: CASE EVENT DATE: 19980820
